FAERS Safety Report 4433596-4 (Version None)
Quarter: 2004Q3

REPORT INFORMATION
  Report Type: 
  Country: None (occurrence: None)
  Receive Date: 20040824
  Receipt Date: 20040811
  Transmission Date: 20050211
  Serious: Yes (Death)
  Sender: FDA-Public Use
  Company Number: R301004-PAP-USA

PATIENT
  Age: 64 Year
  Sex: Female

DRUGS (10)
  1. ACIPHEX [Suspect]
     Indication: GASTROOESOPHAGEAL REFLUX DISEASE
     Dosage: 20 MG, ORAL
     Route: 048
     Dates: start: 20020101
  2. ZOLOFT [Concomitant]
  3. LORTAB [Concomitant]
  4. ZESTRIL [Concomitant]
  5. ASPIRIN [Concomitant]
  6. ZOCOR [Concomitant]
  7. LASIX [Concomitant]
  8. ALDACTONE [Concomitant]
  9. FOLIC ACID [Concomitant]
  10. ELAVIL [Concomitant]

REACTIONS (2)
  - ARRHYTHMIA [None]
  - MYOCARDIAL INFARCTION [None]
